FAERS Safety Report 4551278-5 (Version None)
Quarter: 2005Q1

REPORT INFORMATION
  Report Type: 
  Country: None (occurrence: None)
  Receive Date: 20050111
  Receipt Date: 20050111
  Transmission Date: 20050727
  Serious: Yes (Hospitalization)
  Sender: FDA-Public Use
  Company Number: None

PATIENT
  Sex: Male
  Weight: 78.3 kg

DRUGS (2)
  1. LEVAQUIN [Suspect]
     Indication: URINARY TRACT INFECTION
     Dosage: 250MG  DAILY ORAL
     Route: 048
     Dates: start: 20041022, end: 20041030
  2. CEPHALEXIN [Suspect]
     Indication: EAR INFECTION
     Dosage: ORAL
     Route: 048
     Dates: start: 20041001, end: 20041007

REACTIONS (5)
  - ABDOMINAL PAIN [None]
  - DIARRHOEA [None]
  - EAR INFECTION [None]
  - ORAL INTAKE REDUCED [None]
  - PYREXIA [None]
